FAERS Safety Report 4609274-5 (Version None)
Quarter: 2005Q2

REPORT INFORMATION
  Report Type: 
  Country: None (occurrence: None)
  Receive Date: 20050301
  Receipt Date: 20040122
  Transmission Date: 20051028
  Serious: Yes (Disabling)
  Sender: FDA-Public Use
  Company Number: 002#4#2004-00029

PATIENT
  Age: 65 Year
  Sex: Male

DRUGS (2)
  1. REGLAN [Suspect]
     Indication: GASTROOESOPHAGEAL REFLUX DISEASE
     Dosage: ORAL
     Route: 048
     Dates: start: 19970101, end: 20011001
  2. GABAPENTIN [Concomitant]

REACTIONS (1)
  - TARDIVE DYSKINESIA [None]
